FAERS Safety Report 6742696-5 (Version None)
Quarter: 2010Q2

REPORT INFORMATION
  Report Type: 
  Country: None (occurrence: None)
  Receive Date: 20100526
  Receipt Date: 20090528
  Transmission Date: 20101027
  Serious: No
  Sender: FDA-Public Use
  Company Number: US-ABBOTT-09P-163-0576221-00

PATIENT
  Sex: Male

DRUGS (14)
  1. ZEMPLAR [Suspect]
     Indication: HYPERPARATHYROIDISM
     Dates: start: 20081201
  2. LANTUS [Concomitant]
     Indication: DRUG USE FOR UNKNOWN INDICATION
  3. NOVOLIN [Concomitant]
     Indication: DRUG USE FOR UNKNOWN INDICATION
  4. METOLAZONE [Concomitant]
     Indication: DRUG USE FOR UNKNOWN INDICATION
  5. DILTIAZEM HCL [Concomitant]
     Indication: DRUG USE FOR UNKNOWN INDICATION
  6. METOPROLOL [Concomitant]
     Indication: DRUG USE FOR UNKNOWN INDICATION
  7. ASPIRIN [Concomitant]
     Indication: DRUG USE FOR UNKNOWN INDICATION
  8. PROSCAR [Concomitant]
     Indication: DRUG USE FOR UNKNOWN INDICATION
  9. BACTRIM [Concomitant]
     Indication: DRUG USE FOR UNKNOWN INDICATION
  10. NIASPAN [Concomitant]
     Indication: DRUG USE FOR UNKNOWN INDICATION
  11. POTASSIUM [Concomitant]
     Indication: DRUG USE FOR UNKNOWN INDICATION
  12. PANCREATIC ENZYMES [Concomitant]
     Indication: DRUG USE FOR UNKNOWN INDICATION
  13. MULTIVITE [Concomitant]
     Indication: DRUG USE FOR UNKNOWN INDICATION
  14. PANCREATIC ENZYMES [Concomitant]

REACTIONS (1)
  - ARTHRALGIA [None]
